FAERS Safety Report 19261120 (Version 2)
Quarter: 2021Q2

REPORT INFORMATION
  Report Type: Spontaneous
  Country: US (occurrence: US)
  Receive Date: 20210515
  Receipt Date: 20210607
  Transmission Date: 20210717
  Serious: No
  Sender: FDA-Public Use
  Company Number: US-SA-2021SA157831

PATIENT
  Sex: Male

DRUGS (2)
  1. HUMALOG [Concomitant]
     Active Substance: INSULIN LISPRO
     Dosage: UNK
     Route: 065
  2. TOUJEO [Suspect]
     Active Substance: INSULIN GLARGINE
     Indication: TYPE 1 DIABETES MELLITUS
     Dosage: 25 UNITS IN THE MORNING AND 35 UNITS IN THE EVENING, Q12H
     Route: 065

REACTIONS (4)
  - Intentional product use issue [Unknown]
  - Product storage error [Unknown]
  - Product prescribing issue [Unknown]
  - Fear [Unknown]
